FAERS Safety Report 5139836-0 (Version None)
Quarter: 2006Q4

REPORT INFORMATION
  Report Type: 
  Country: None (occurrence: None)
  Receive Date: 20061025
  Receipt Date: 20061025
  Transmission Date: 20070319
  Serious: Yes (Other)
  Sender: FDA-Public Use
  Company Number: None

PATIENT
  Age: 35 Year
  Sex: Female
  Weight: 116.8 kg

DRUGS (1)
  1. TOPIRAMATE [Suspect]

REACTIONS (1)
  - RASH [None]
